FAERS Safety Report 11627351 (Version 1)
Quarter: 2015Q4

REPORT INFORMATION
  Report Type: Spontaneous
  Country: US (occurrence: US)
  Receive Date: 20151013
  Receipt Date: 20151013
  Transmission Date: 20160304
  Serious: No
  Sender: FDA-Public Use
  Company Number: US-AMGEN-USASP2015078585

PATIENT
  Age: 35 Year
  Sex: Female

DRUGS (1)
  1. NEUPOGEN [Suspect]
     Active Substance: FILGRASTIM
     Indication: ASSISTED FERTILISATION
     Dosage: 0.2 ML FROM NEUPOGEN 300MCG/ML VIAL DAILY
     Route: 065

REACTIONS (1)
  - Off label use [Unknown]
